FAERS Safety Report 10601702 (Version 1)
Quarter: 2014Q4

REPORT INFORMATION
  Report Type: Report from Study
  Country: FR (occurrence: FR)
  Receive Date: 20141124
  Receipt Date: 20141124
  Transmission Date: 20150529
  Serious: Yes (Hospitalization, Other)
  Sender: FDA-Public Use
  Company Number: FR-TAKEDA-2014JNJ006225

PATIENT

DRUGS (3)
  1. VELCADE [Suspect]
     Active Substance: BORTEZOMIB
     Indication: RENAL FAILURE
     Dosage: 2.6 MG, UNK
     Route: 058
     Dates: start: 20140502, end: 20140630
  2. DEXAMETHASONE. [Suspect]
     Active Substance: DEXAMETHASONE
     Indication: RENAL FAILURE
     Dosage: 20 MG, UNK
     Route: 048
     Dates: start: 20140502, end: 20140703
  3. CYCLOPHOSPHAMIDE. [Suspect]
     Active Substance: CYCLOPHOSPHAMIDE
     Indication: RENAL FAILURE
     Dosage: 1500 MG, UNK
     Route: 042
     Dates: start: 20140502, end: 20140623

REACTIONS (1)
  - Arthritis bacterial [Recovered/Resolved]

NARRATIVE: CASE EVENT DATE: 20140702
